FAERS Safety Report 14160462 (Version 1)
Quarter: 2017Q4

REPORT INFORMATION
  Report Type: Spontaneous
  Country: GB (occurrence: GB)
  Receive Date: 20171106
  Receipt Date: 20171106
  Transmission Date: 20180321
  Serious: Yes (Disabling, Other)
  Sender: FDA-Public Use
  Company Number: GB-BRISTOL-MYERS SQUIBB COMPANY-BMS-2017-097770

PATIENT
  Age: 67 Year
  Sex: Female

DRUGS (2)
  1. TURMERIC                           /01079602/ [Concomitant]
     Active Substance: HERBALS\TURMERIC
     Indication: PRODUCT USED FOR UNKNOWN INDICATION
     Route: 065
  2. OPDIVO [Suspect]
     Active Substance: NIVOLUMAB
     Indication: LUNG ADENOCARCINOMA
     Route: 042
     Dates: start: 20160614, end: 20170103

REACTIONS (4)
  - Ataxia [Not Recovered/Not Resolved]
  - Malignant neoplasm progression [Unknown]
  - Primary cerebellar degeneration [Not Recovered/Not Resolved]
  - Nystagmus [Not Recovered/Not Resolved]

NARRATIVE: CASE EVENT DATE: 20170718
